FAERS Safety Report 7522792-5 (Version None)
Quarter: 2011Q2

REPORT INFORMATION
  Report Type: 
  Country: None (occurrence: None)
  Receive Date: 20110603
  Receipt Date: 20110527
  Transmission Date: 20111010
  Serious: Yes (Other)
  Sender: FDA-Public Use
  Company Number: SE-PFIZER INC-2011101566

PATIENT
  Sex: Male

DRUGS (2)
  1. AZOPT [Concomitant]
     Dosage: UNK
     Route: 047
  2. XALATAN [Suspect]
     Indication: GLAUCOMA
     Dosage: UNK
     Dates: start: 20100101

REACTIONS (1)
  - INTRAOCULAR PRESSURE INCREASED [None]
